FAERS Safety Report 12947306 (Version 1)
Quarter: 2016Q4

REPORT INFORMATION
  Report Type: Spontaneous
  Country: US (occurrence: US)
  Receive Date: 20161116
  Receipt Date: 20161116
  Transmission Date: 20170207
  Serious: Yes (Other)
  Sender: FDA-Public Use
  Company Number: US-PFIZER INC-2016530209

PATIENT
  Age: 65 Year
  Sex: Female

DRUGS (2)
  1. SYNTHROID [Concomitant]
     Active Substance: LEVOTHYROXINE SODIUM
     Indication: HYPOTHYROIDISM
     Dosage: 0.075 UG, 1X/DAY IN THE MORNING
     Dates: start: 1999
  2. SERTRALINE HCL [Suspect]
     Active Substance: SERTRALINE HYDROCHLORIDE
     Indication: HORMONE LEVEL ABNORMAL
     Dosage: 200 MG, 1X/DAY
     Dates: start: 201301, end: 201301

REACTIONS (6)
  - Nausea [Recovered/Resolved]
  - Metamorphopsia [Recovered/Resolved]
  - Eye disorder [Recovered/Resolved]
  - Photophobia [Recovered/Resolved]
  - Migraine [Recovered/Resolved]
  - Visual impairment [Recovered/Resolved]

NARRATIVE: CASE EVENT DATE: 201301
